FAERS Safety Report 12536393 (Version 1)
Quarter: 2016Q3

REPORT INFORMATION
  Report Type: Spontaneous
  Country: EE (occurrence: EE)
  Receive Date: 20160707
  Receipt Date: 20160707
  Transmission Date: 20161109
  Serious: Yes (Other)
  Sender: FDA-Public Use
  Company Number: EE-BAYER-2016-116421

PATIENT
  Age: 27 Year
  Sex: Female

DRUGS (1)
  1. FLEREE [Suspect]
     Active Substance: LEVONORGESTREL
     Indication: CONTRACEPTION
     Dosage: UNK
     Route: 015
     Dates: start: 201405, end: 20160614

REACTIONS (7)
  - Haemorrhage in pregnancy [None]
  - Abortion spontaneous [None]
  - Drug ineffective [None]
  - Menstruation delayed [None]
  - Abdominal pain [None]
  - Pregnancy with contraceptive device [None]
  - Retroplacental haematoma [None]

NARRATIVE: CASE EVENT DATE: 20160530
